FAERS Safety Report 6081505-7 (Version None)
Quarter: 2009Q1

REPORT INFORMATION
  Report Type: 
  Country: None (occurrence: None)
  Receive Date: 20090218
  Receipt Date: 20090209
  Transmission Date: 20090719
  Serious: Yes (Other)
  Sender: FDA-Public Use
  Company Number: SE-NOVOPROD-280328

PATIENT
  Age: 31 Year
  Sex: Female
  Weight: 72 kg

DRUGS (3)
  1. LEVEMIR [Suspect]
     Indication: TYPE 1 DIABETES MELLITUS
     Dosage: 30 IU, UNK
     Route: 058
     Dates: start: 20070514
  2. NOVORAPID [Suspect]
     Indication: DIABETES MELLITUS
     Dosage: 30 IU, UNK
     Route: 058
  3. NOVORAPID [Suspect]
     Indication: TYPE 1 DIABETES MELLITUS

REACTIONS (1)
  - UTERINE HYPOTONUS [None]
